FAERS Safety Report 16057240 (Version 2)
Quarter: 2019Q1

REPORT INFORMATION
  Report Type: Spontaneous
  Country: US (occurrence: US)
  Receive Date: 20190311
  Receipt Date: 20190315
  Transmission Date: 20190418
  Serious: No
  Sender: FDA-Public Use
  Company Number: US-PFIZER INC-2019092758

PATIENT
  Age: 71 Year
  Sex: Male
  Weight: 90.72 kg

DRUGS (4)
  1. OMEPRAZOLE. [Concomitant]
     Active Substance: OMEPRAZOLE
     Indication: GASTROOESOPHAGEAL REFLUX DISEASE
     Dosage: 40 MG, 1X/DAY
     Route: 048
  2. LEVOTHYROXINE. [Concomitant]
     Active Substance: LEVOTHYROXINE
     Indication: THYROID NODULE REMOVAL
     Dosage: 56 UG, DAILY
     Route: 048
     Dates: start: 2002
  3. PIOGLITAZONE. [Concomitant]
     Active Substance: PIOGLITAZONE
     Indication: GLUCOSE TOLERANCE IMPAIRED
     Dosage: UNK UNK, 1X/DAY (22.5 MG, WHICH IS HALF OF A 45 MG TABLET)
     Route: 048
     Dates: start: 2003
  4. XELJANZ [Suspect]
     Active Substance: TOFACITINIB CITRATE
     Indication: ANKYLOSING SPONDYLITIS
     Dosage: 5 MG, 1X/DAY
     Route: 048

REACTIONS (1)
  - Drug effective for unapproved indication [Unknown]
